FAERS Safety Report 8981970 (Version 1)
Quarter: 2012Q4

REPORT INFORMATION
  Report Type: 
  Country: US (occurrence: US)
  Receive Date: 20121212
  Receipt Date: 20121212
  Transmission Date: 20130627
  Serious: Yes (Death)
  Sender: FDA-Public Use
  Company Number: US-ASTELLAS-CID000000002079462

PATIENT
  Age: 59 Year
  Sex: Male

DRUGS (2)
  1. TARCEVA [Suspect]
     Indication: RENAL CANCER
  2. TARCEVA [Suspect]
     Indication: LUNG NEOPLASM MALIGNANT

REACTIONS (6)
  - Anaemia [Unknown]
  - Fatigue [Unknown]
  - Nausea [Unknown]
  - Malaise [Unknown]
  - Weight decreased [Unknown]
  - Death [Fatal]
